FAERS Safety Report 5944340-3 (Version None)
Quarter: 2008Q4

REPORT INFORMATION
  Report Type: 
  Country: None (occurrence: None)
  Receive Date: 20081105
  Receipt Date: 20081024
  Transmission Date: 20090506
  Serious: Yes (Other)
  Sender: FDA-Public Use
  Company Number: US024836

PATIENT
  Age: 61 Year
  Sex: Female
  Weight: 64.4108 kg

DRUGS (3)
  1. PROVIGIL [Suspect]
     Indication: ATTENTION DEFICIT/HYPERACTIVITY DISORDER
     Dosage: 100 MG QD ORAL
     Route: 048
     Dates: start: 20081003, end: 20081005
  2. LISINOPRIL [Concomitant]
  3. METFORMIN HCL [Concomitant]

REACTIONS (5)
  - APHTHOUS STOMATITIS [None]
  - ORAL DISORDER [None]
  - RASH [None]
  - STOMATITIS [None]
  - SWOLLEN TONGUE [None]
